FAERS Safety Report 8577356 (Version 6)
Quarter: 2013Q1

REPORT INFORMATION
  Report Type: Report from Study
  Country: IL (occurrence: IL)
  Receive Date: 20120524
  Receipt Date: 20130311
  Transmission Date: 20140127
  Serious: Yes (Life-Threatening, Hospitalization)
  Sender: FDA-Public Use
  Company Number: PHHO2012IL007705

PATIENT
  Age: 7 Year
  Sex: Female

DRUGS (6)
  1. ACZ885 [Suspect]
     Indication: JUVENILE IDIOPATHIC ARTHRITIS
     Dosage: 0.45 ML, UNK
     Dates: start: 20100111, end: 20120208
  2. METHOTREXAT [Concomitant]
     Indication: JUVENILE IDIOPATHIC ARTHRITIS
     Dosage: UNK
     Dates: end: 2012
  3. METHYLPREDNISOLONE [Concomitant]
     Indication: JUVENILE IDIOPATHIC ARTHRITIS
     Dosage: 10 MG/ DAY
     Dates: start: 20100121
  4. AMOXICILLIN [Concomitant]
  5. VITAMIN D [Concomitant]
     Dosage: UNK
     Dates: start: 20080707
  6. IRON [Concomitant]
     Indication: ANAEMIA PROPHYLAXIS
     Dosage: UNK
     Dates: start: 200706

REACTIONS (5)
  - Septic shock [Recovered/Resolved]
  - Gastroenteritis [Recovered/Resolved]
  - Peritonitis [Recovered/Resolved]
  - Pneumonia [Recovered/Resolved]
  - Device related sepsis [Recovered/Resolved]
